FAERS Safety Report 9028451 (Version 2)
Quarter: 2013Q2

REPORT INFORMATION
  Report Type: Spontaneous
  Country: CA (occurrence: CA)
  Receive Date: 20130124
  Receipt Date: 20130401
  Transmission Date: 20140414
  Serious: Yes (Hospitalization, Other)
  Sender: FDA-Public Use
  Company Number: CA-JNJFOC-20120309246

PATIENT
  Age: 31 Year
  Sex: Female
  Weight: 124 kg

DRUGS (2)
  1. REMICADE [Suspect]
     Indication: PSORIASIS
     Route: 042
     Dates: start: 201301
  2. REMICADE [Suspect]
     Indication: PSORIASIS
     Route: 042
     Dates: start: 20110607, end: 20120403

REACTIONS (5)
  - Joint swelling [Recovering/Resolving]
  - Arthralgia [Recovering/Resolving]
  - Exposure during pregnancy [Recovered/Resolved]
  - Psoriasis [Unknown]
  - Pain [Recovering/Resolving]
